FAERS Safety Report 7921578-7 (Version None)
Quarter: 2011Q4

REPORT INFORMATION
  Report Type: 
  Country: None (occurrence: None)
  Receive Date: 20111117
  Receipt Date: 20111114
  Transmission Date: 20120403
  Serious: Yes (Hospitalization, Disabling)
  Sender: FDA-Public Use
  Company Number: PHHY2011HU097695

PATIENT
  Sex: Female

DRUGS (4)
  1. RADIATION THERAPY [Concomitant]
  2. HORMONES [Concomitant]
  3. LETROZOLE [Suspect]
     Dosage: 2.5 MG DAILY
     Dates: start: 20070924
  4. CYTOSTATIC [Concomitant]

REACTIONS (2)
  - ARRHYTHMIA SUPRAVENTRICULAR [None]
  - DYSPNOEA [None]
